FAERS Safety Report 22101388 (Version 1)
Quarter: 2023Q1

REPORT INFORMATION
  Report Type: Report from Study
  Country: US (occurrence: US)
  Receive Date: 20230316
  Receipt Date: 20230316
  Transmission Date: 20230417
  Serious: Yes (Hospitalization, Other)
  Sender: FDA-Public Use
  Company Number: US-NOVITIUMPHARMA-2023USNVP00304

PATIENT
  Age: 17 Month
  Sex: Female

DRUGS (2)
  1. CARGLUMIC ACID [Suspect]
     Active Substance: CARGLUMIC ACID
     Indication: Hyperglycinaemia
     Route: 048
  2. CARGLUMIC ACID [Suspect]
     Active Substance: CARGLUMIC ACID
     Route: 048

REACTIONS (1)
  - Seizure [Unknown]
